FAERS Safety Report 16448905 (Version 1)
Quarter: 2019Q2

REPORT INFORMATION
  Report Type: Spontaneous
  Country: CA (occurrence: CA)
  Receive Date: 20190619
  Receipt Date: 20190619
  Transmission Date: 20190711
  Serious: Yes (Other)
  Sender: FDA-Public Use
  Company Number: CA-AUROBINDO-AUR-APL-2019-034716

PATIENT

DRUGS (2)
  1. WELLBUTRIN [Suspect]
     Active Substance: BUPROPION HYDROCHLORIDE
     Indication: BIPOLAR I DISORDER
     Dosage: UNK
     Route: 065
  2. VENLAFAXINE [Suspect]
     Active Substance: VENLAFAXINE HYDROCHLORIDE
     Indication: BIPOLAR I DISORDER
     Dosage: UNK
     Route: 065

REACTIONS (3)
  - Aggression [Unknown]
  - Agitation [Unknown]
  - Anger [Unknown]
